FAERS Safety Report 20982120 (Version 1)
Quarter: 2022Q2

REPORT INFORMATION
  Report Type: Spontaneous
  Country: US (occurrence: US)
  Receive Date: 20220620
  Receipt Date: 20220620
  Transmission Date: 20220721
  Serious: No
  Sender: FDA-Public Use
  Company Number: US-ORGANON-O2206USA000696

PATIENT
  Age: 2 Year

DRUGS (3)
  1. SINGULAIR [Suspect]
     Active Substance: MONTELUKAST SODIUM
     Indication: Prophylaxis
     Dosage: APPROXIMATELY 30 TO 60 MINUTES BEFORE START OF INFUSION
     Route: 048
  2. DIPHENHYDRAMINE [Concomitant]
     Active Substance: DIPHENHYDRAMINE
     Indication: Prophylaxis
     Dosage: APPROXIMATELY 30 TO 60 MINUTES BEFORE START OF INFUSION
     Route: 042
  3. CETIRIZINE [Concomitant]
     Active Substance: CETIRIZINE HYDROCHLORIDE
     Indication: Prophylaxis
     Dosage: APPROXIMATELY 30 TO 60 MINUTES BEFORE START OF INFUSION
     Route: 048

REACTIONS (1)
  - Product use in unapproved indication [Unknown]
